FAERS Safety Report 15780929 (Version 1)
Quarter: 2018Q4

REPORT INFORMATION
  Report Type: Spontaneous
  Country: US (occurrence: US)
  Receive Date: 20181227
  Receipt Date: 20181227
  Transmission Date: 20190205
  Serious: No
  Sender: FDA-Public Use
  Company Number: None

PATIENT

DRUGS (3)
  1. STERILE WATER FOR IRRIGATION [Suspect]
     Active Substance: WATER
  2. DIURIL [Suspect]
     Active Substance: CHLOROTHIAZIDE
  3. STERILE WATER FOR INJECTION [Suspect]
     Active Substance: WATER

REACTIONS (1)
  - Product preparation error [None]
